FAERS Safety Report 7116003-2 (Version None)
Quarter: 2010Q4

REPORT INFORMATION
  Report Type: 
  Country: None (occurrence: None)
  Receive Date: 20101122
  Receipt Date: 20101108
  Transmission Date: 20110411
  Serious: Yes (Life-Threatening, Hospitalization)
  Sender: FDA-Public Use
  Company Number: FR-SANOFI-AVENTIS-2010SA067962

PATIENT
  Age: 54 Year
  Sex: Female

DRUGS (8)
  1. FLUDEX [Suspect]
     Route: 048
     Dates: start: 20100903, end: 20100917
  2. ALISKIREN [Concomitant]
     Route: 065
     Dates: end: 20100917
  3. LEVOTHYROXINE SODIUM [Concomitant]
     Route: 065
  4. SEROPLEX [Concomitant]
     Route: 065
  5. MEPRONIZINE [Concomitant]
     Route: 065
  6. ATARAX [Concomitant]
     Route: 065
  7. TAREG [Concomitant]
     Route: 065
     Dates: end: 20100917
  8. VALIUM [Concomitant]
     Route: 065

REACTIONS (8)
  - BLOOD CREATININE INCREASED [None]
  - FALL [None]
  - HYPOCHLORAEMIA [None]
  - HYPOKALAEMIA [None]
  - HYPOMAGNESAEMIA [None]
  - HYPONATRAEMIA [None]
  - MALAISE [None]
  - ORTHOSTATIC HYPOTENSION [None]
